FAERS Safety Report 7624738-8 (Version None)
Quarter: 2011Q3

REPORT INFORMATION
  Report Type: 
  Country: None (occurrence: None)
  Receive Date: 20110720
  Receipt Date: 20110629
  Transmission Date: 20111222
  Serious: No
  Sender: FDA-Public Use
  Company Number: US-B.I. PHARMACEUTICALS,INC./RIDGEFIELD-2011-BP-16674BP

PATIENT
  Age: 68 Year
  Sex: Male

DRUGS (11)
  1. FLONASE [Concomitant]
     Indication: CHRONIC OBSTRUCTIVE PULMONARY DISEASE
     Route: 055
  2. SPIRIVA [Suspect]
     Indication: CHRONIC OBSTRUCTIVE PULMONARY DISEASE
     Dosage: 18 MCG
     Route: 055
     Dates: start: 20110401
  3. TOBRAMYCIN [Suspect]
     Indication: CATARACT
     Dosage: 0.3% EYE DROPS
     Route: 031
     Dates: start: 20110501
  4. PULMICORT [Concomitant]
     Indication: CHRONIC OBSTRUCTIVE PULMONARY DISEASE
     Route: 055
  5. PREDNISONE ACETATE [Suspect]
     Indication: CATARACT
     Dosage: 1% EYE DROPS
     Route: 031
     Dates: start: 20110501
  6. SIMVASTATIN [Concomitant]
     Indication: BLOOD CHOLESTEROL INCREASED
     Dosage: 200 MG
     Route: 048
  7. WARFARIN SODIUM [Concomitant]
     Dosage: 5 MG
     Route: 048
  8. KETOROLAC TROMETHAMINE [Suspect]
     Indication: CATARACT
     Dosage: 0.4% EYE DROPS
     Route: 031
     Dates: start: 20110501
  9. ALBUTEROL SULFATE AUTOHALER [Concomitant]
     Indication: CHRONIC OBSTRUCTIVE PULMONARY DISEASE
     Route: 055
  10. THEOPHYLLINE [Concomitant]
     Indication: CHRONIC OBSTRUCTIVE PULMONARY DISEASE
     Dosage: 200 MG
     Route: 048
  11. PREDNISONE [Concomitant]
     Indication: CHRONIC OBSTRUCTIVE PULMONARY DISEASE
     Dosage: 10 MG
     Route: 048

REACTIONS (3)
  - OCULAR HYPERAEMIA [None]
  - INCORRECT ROUTE OF DRUG ADMINISTRATION [None]
  - EYE IRRITATION [None]
